FAERS Safety Report 18210382 (Version 1)
Quarter: 2020Q3

REPORT INFORMATION
  Report Type: Report from Study
  Country: CA (occurrence: CA)
  Receive Date: 20200829
  Receipt Date: 20200829
  Transmission Date: 20201103
  Serious: Yes (Other)
  Sender: FDA-Public Use
  Company Number: CA-ACCORD-197833

PATIENT
  Age: 72 Year
  Sex: Male

DRUGS (2)
  1. ETANERCEPT [Suspect]
     Active Substance: ETANERCEPT
     Indication: PSORIATIC ARTHROPATHY
     Dosage: 1 EVERY 1 WEEKS
     Route: 058
  2. METHOTREXATE. [Suspect]
     Active Substance: METHOTREXATE
     Indication: BLOOD PRESSURE MEASUREMENT
     Route: 065

REACTIONS (8)
  - Gait disturbance [Unknown]
  - Grip strength decreased [Unknown]
  - Off label use [Unknown]
  - General physical health deterioration [Unknown]
  - Pneumonia [Unknown]
  - Malaise [Unknown]
  - Pain [Unknown]
  - Liver function test abnormal [Unknown]
